FAERS Safety Report 10589630 (Version 1)
Quarter: 2014Q4

REPORT INFORMATION
  Report Type: Spontaneous
  Country: US (occurrence: None)
  Receive Date: 20141114
  Receipt Date: 20141114
  Transmission Date: 20150529
  Serious: Yes (Hospitalization, Other)
  Sender: FDA-Public Use
  Company Number: None

PATIENT
  Age: 28 Year
  Sex: Female
  Weight: 70.31 kg

DRUGS (1)
  1. TOPAMAX [Suspect]
     Active Substance: TOPIRAMATE
     Indication: BIPOLAR I DISORDER
     Dosage: TAKE 50MG IN AM AND 100MG PM TWICE DAILY
     Route: 048
     Dates: start: 20140702, end: 20141105

REACTIONS (4)
  - Pain in jaw [None]
  - Breast pain [None]
  - Gingival swelling [None]
  - Tooth fracture [None]

NARRATIVE: CASE EVENT DATE: 20140918
